FAERS Safety Report 8591135-0 (Version None)
Quarter: 2012Q3

REPORT INFORMATION
  Report Type: 
  Country: None (occurrence: None)
  Receive Date: 20120813
  Receipt Date: 20120809
  Transmission Date: 20120928
  Serious: Yes (Hospitalization, Other)
  Sender: FDA-Public Use
  Company Number: BR-ROCHE-737512

PATIENT
  Sex: Female
  Weight: 65 kg

DRUGS (13)
  1. ARAVA [Concomitant]
  2. DAFORIN [Concomitant]
  3. ANASTROZOLE [Concomitant]
  4. VERAPAMIL [Concomitant]
  5. GLUCOSAMINE [Concomitant]
  6. PREDNISOLONE [Concomitant]
  7. ATENOLOL [Concomitant]
  8. POLARAMINE [Concomitant]
     Indication: PREMEDICATION
     Dosage: DOSE AND FREQUENCY NOT REPORTED
  9. MABTHERA [Suspect]
     Route: 042
  10. OSTEONUTRI [Concomitant]
  11. ATACAND [Concomitant]
  12. MABTHERA [Suspect]
     Indication: RHEUMATOID ARTHRITIS
     Dosage: DOSE: 500MG/50 ML, FREQUENCY: 1000 MG/INFUSION, FORM: INFUSION, OTHER ROUTE: ENDOVENOUS
     Route: 042
     Dates: start: 20110708, end: 20110722
  13. AMYTRIL [Concomitant]

REACTIONS (13)
  - SWELLING FACE [None]
  - HYPERGLYCAEMIA [None]
  - BLOOD GLUCOSE INCREASED [None]
  - INFUSION RELATED REACTION [None]
  - OEDEMA PERIPHERAL [None]
  - TOOTH DISORDER [None]
  - BREAST CANCER [None]
  - RHEUMATOID ARTHRITIS [None]
  - SINUSITIS [None]
  - BREAST CANCER FEMALE [None]
  - ARTHRALGIA [None]
  - PNEUMONIA [None]
  - HEADACHE [None]
